FAERS Safety Report 7630210-1 (Version None)
Quarter: 2011Q3

REPORT INFORMATION
  Report Type: 
  Country: None (occurrence: None)
  Receive Date: 20110722
  Receipt Date: 20110717
  Transmission Date: 20111222
  Serious: Yes (Death, Other)
  Sender: FDA-Public Use
  Company Number: PHHY2011HU64601

PATIENT
  Age: 44 Year
  Sex: Male

DRUGS (6)
  1. ANTIBIOTICS [Concomitant]
  2. OCTREOTIDE ACETATE [Suspect]
     Indication: BLOOD GLUCAGON INCREASED
     Dosage: 200 UG, TID
     Route: 058
  3. INSULIN [Concomitant]
  4. AMINO ACIDS [Concomitant]
  5. PROTEIN SUPPLEMENTS [Concomitant]
  6. ZINC SULFATE [Concomitant]

REACTIONS (2)
  - SEPTIC SHOCK [None]
  - GENERAL PHYSICAL HEALTH DETERIORATION [None]
